FAERS Safety Report 21097182 (Version 1)
Quarter: 2022Q3

REPORT INFORMATION
  Report Type: Spontaneous
  Country: US (occurrence: US)
  Receive Date: 20220719
  Receipt Date: 20220719
  Transmission Date: 20221027
  Serious: No
  Sender: FDA-Public Use
  Company Number: US-BRACCO-2022US01044

PATIENT
  Age: 74 Year
  Sex: Male

DRUGS (2)
  1. AXUMIN [Suspect]
     Active Substance: FLUCICLOVINE F-18
     Indication: Computerised tomogram
     Dosage: 10 MCI, SINGLE
     Route: 042
     Dates: start: 20220208, end: 20220208
  2. SODIUM CHLORIDE [Concomitant]
     Active Substance: SODIUM CHLORIDE
     Indication: Positron emission tomogram
     Dosage: 20 ML
     Route: 042
     Dates: start: 20220208, end: 20220208

REACTIONS (2)
  - Injection site extravasation [Unknown]
  - No adverse event [Unknown]

NARRATIVE: CASE EVENT DATE: 20220208
